FAERS Safety Report 17841081 (Version 3)
Quarter: 2020Q4

REPORT INFORMATION
  Report Type: Spontaneous
  Country: US (occurrence: US)
  Receive Date: 20200529
  Receipt Date: 20201106
  Transmission Date: 20210113
  Serious: Yes (Other)
  Sender: FDA-Public Use
  Company Number: US-PFIZER INC-2020146025

PATIENT
  Age: 67 Year
  Sex: Female

DRUGS (4)
  1. METHOTREXATE. [Concomitant]
     Active Substance: METHOTREXATE
     Dosage: UNK
  2. SYNTHROID [Concomitant]
     Active Substance: LEVOTHYROXINE SODIUM
     Dosage: UNK [XELJANZ EARLY AT 6AM INSTEAD OF 6PM DUE TO MIXING UP HER XELJANZ AND SYNTHROID]
     Dates: start: 202006
  3. XELJANZ XR [Suspect]
     Active Substance: TOFACITINIB CITRATE
     Indication: RHEUMATOID ARTHRITIS
     Dosage: 11 MG, DAILY
     Route: 048
     Dates: start: 20191215, end: 20200627
  4. XELJANZ XR [Suspect]
     Active Substance: TOFACITINIB CITRATE
     Dosage: 11 MG, DAILY [XELJANZ EARLY AT 6AM INSTEAD OF 6PM DUE TO MIXING UP HER XELJANZ AND SYNTHROID]
     Route: 048
     Dates: start: 202006

REACTIONS (15)
  - Arthralgia [Unknown]
  - Alopecia [Unknown]
  - Trichorrhexis [Unknown]
  - Feeling abnormal [Recovering/Resolving]
  - Grip strength decreased [Not Recovered/Not Resolved]
  - Accidental overdose [Unknown]
  - Sleep disorder [Unknown]
  - Decreased appetite [Unknown]
  - Product dose omission issue [Unknown]
  - Nail disorder [Unknown]
  - Fatigue [Recovering/Resolving]
  - Therapeutic product effect incomplete [Unknown]
  - Inappropriate schedule of product administration [Unknown]
  - Onychoclasis [Unknown]
  - Musculoskeletal stiffness [Recovering/Resolving]

NARRATIVE: CASE EVENT DATE: 20200626
